FAERS Safety Report 14816658 (Version 2)
Quarter: 2018Q2

REPORT INFORMATION
  Report Type: Report from Study
  Country: US (occurrence: US)
  Receive Date: 20180426
  Receipt Date: 20180508
  Transmission Date: 20180711
  Serious: Yes (Other)
  Sender: FDA-Public Use
  Company Number: US-GILEAD-2018-0331664

PATIENT
  Age: 74 Year
  Sex: Female
  Weight: 50.34 kg

DRUGS (27)
  1. TADALAFIL [Concomitant]
     Active Substance: TADALAFIL
  2. CEFAZOLIN SODIUM. [Concomitant]
     Active Substance: CEFAZOLIN SODIUM
  3. AMLODIPINE [Concomitant]
     Active Substance: AMLODIPINE BESYLATE
  4. PREDNISONE. [Concomitant]
     Active Substance: PREDNISONE
  5. LASIX [Concomitant]
     Active Substance: FUROSEMIDE
  6. ZOLEDRONIC ACID [Concomitant]
     Active Substance: ZOLEDRONIC ACID
  7. AMBRISENTAN [Suspect]
     Active Substance: AMBRISENTAN
     Indication: PRODUCT USED FOR UNKNOWN INDICATION
     Dosage: 10 MG, QD
     Route: 048
     Dates: start: 20180328
  8. FERROUS SULFATE. [Concomitant]
     Active Substance: FERROUS SULFATE
  9. FOLVITE                            /00024201/ [Concomitant]
  10. CELLCEPT [Concomitant]
     Active Substance: MYCOPHENOLATE MOFETIL\MYCOPHENOLATE MOFETIL HYDROCHLORIDE
  11. UMECLIDINIUM BROMIDE W/VILANTEROL [Concomitant]
  12. ALBUTEROL                          /00139501/ [Concomitant]
     Active Substance: ALBUTEROL
  13. VITAMIN D3 [Concomitant]
     Active Substance: CHOLECALCIFEROL
  14. PLAVIX [Concomitant]
     Active Substance: CLOPIDOGREL BISULFATE
  15. LIVALO [Concomitant]
     Active Substance: PITAVASTATIN CALCIUM
  16. PANTOPRAZOLE SODIUM. [Concomitant]
     Active Substance: PANTOPRAZOLE SODIUM
  17. POTASSIUM CHLORIDE. [Concomitant]
     Active Substance: POTASSIUM CHLORIDE
  18. OXYGEN. [Concomitant]
     Active Substance: OXYGEN
  19. FLONASE                            /00908302/ [Concomitant]
     Active Substance: MOMETASONE FUROATE
  20. ASPIRIN 81 [Concomitant]
     Active Substance: ASPIRIN
  21. CALCIUM CARBONATE. [Concomitant]
     Active Substance: CALCIUM CARBONATE
  22. OCUVITE PRESERVISION               /01762701/ [Concomitant]
  23. VITAMIN C [Concomitant]
     Active Substance: ASCORBIC ACID
  24. ANORO ELLIPTA [Concomitant]
     Active Substance: UMECLIDINIUM BROMIDE\VILANTEROL TRIFENATATE
  25. COREG [Concomitant]
     Active Substance: CARVEDILOL
  26. LEVOTHYROXINE. [Concomitant]
     Active Substance: LEVOTHYROXINE
  27. POLYVINYL ALCOHOL [Concomitant]
     Active Substance: POLYVINYL ALCOHOL

REACTIONS (9)
  - Dizziness [Not Recovered/Not Resolved]
  - Bursitis [Not Recovered/Not Resolved]
  - Anaemia [Not Recovered/Not Resolved]
  - Dyspnoea [Not Recovered/Not Resolved]
  - Peripheral swelling [Unknown]
  - Pain in extremity [Not Recovered/Not Resolved]
  - Oedema [Unknown]
  - Diastolic hypotension [Not Recovered/Not Resolved]
  - Chest pain [Unknown]
